FAERS Safety Report 6498728-5 (Version None)
Quarter: 2009Q4

REPORT INFORMATION
  Report Type: 
  Country: None (occurrence: None)
  Receive Date: 20091127
  Receipt Date: 20091103
  Transmission Date: 20100525
  Serious: Yes (Hospitalization, Other)
  Sender: FDA-Public Use
  Company Number: 290194

PATIENT
  Age: 64 Year
  Sex: Female
  Weight: 91.2 kg

DRUGS (18)
  1. NOVOLOG FLEXPEN (INSULIN ASPART) SOLUTION FOR INJECTION, 1000/ML [Suspect]
     Indication: TYPE 2 DIABETES MELLITUS
     Dosage: 10 LU WITH EACH MEAL PLUS SLIDING SCALE, SUBCUTANEOUS
     Route: 057
     Dates: end: 20090731
  2. NOVOFINE? 30 (NEEDLE [Concomitant]
  3. LANTUS SOLOSTAR (INSULIN GLARGINE) [Concomitant]
  4. ST. JOHN'S WORT (HYPERICUM PERFORATUM) [Concomitant]
  5. VITAMIN C /00008001/ (ASCORBIC ACID) [Concomitant]
  6. AVALIDE [Concomitant]
  7. CITRACAL-D (CALCIUM CITRATE, COLECALCIFEROL) [Concomitant]
  8. BILBERRY /01397601/ (VACCINIUM MYRTILLUS) [Concomitant]
  9. BENADRYL [Concomitant]
  10. VITAMIN E /00110501/ (TOCOPHEROL) [Concomitant]
  11. ERGOCALCIFEROL [Concomitant]
  12. SERTRALINE HYDROCHLORIDE [Concomitant]
  13. VITAMIN B6 [Concomitant]
  14. VITAMIN B12 [Concomitant]
  15. TOPROL-XL [Concomitant]
  16. GABAPENTIN [Concomitant]
  17. ARIMIDEX [Concomitant]
  18. HYDROCODONE BITARTRATE AND ACETAMINOPHEN (HYDROCODONE BITARTRATE, PARA [Concomitant]

REACTIONS (8)
  - DEVICE BREAKAGE [None]
  - DIVERTICULUM [None]
  - HEPATIC STEATOSIS [None]
  - HIATUS HERNIA [None]
  - HYPERGLYCAEMIA [None]
  - NEPHROLITHIASIS [None]
  - RENAL CYST [None]
  - WEIGHT DECREASED [None]
